FAERS Safety Report 8581593-X (Version None)
Quarter: 2012Q3

REPORT INFORMATION
  Report Type: 
  Country: None (occurrence: None)
  Receive Date: 20120809
  Receipt Date: 20120801
  Transmission Date: 20120928
  Serious: Yes (Hospitalization, Other)
  Sender: FDA-Public Use
  Company Number: JP-ASTELLAS-2012US006739

PATIENT
  Sex: Male

DRUGS (17)
  1. GEMCITABINE HYDROCHLORIDE [Concomitant]
     Dosage: 1000 MG/M2, UID/QD
     Route: 041
     Dates: start: 20120614, end: 20120614
  2. GEMCITABINE HYDROCHLORIDE [Concomitant]
     Dosage: 1000 MG/M2, UID/QD
     Route: 041
     Dates: start: 20120621, end: 20120621
  3. GEMCITABINE HYDROCHLORIDE [Concomitant]
     Indication: ADENOCARCINOMA PANCREAS
     Dosage: 1000 MG/M2, UID/QD
     Route: 041
     Dates: start: 20120507, end: 20120507
  4. GEMCITABINE HYDROCHLORIDE [Concomitant]
     Dosage: 1000 MG/M2, UID/QD
     Route: 041
     Dates: start: 20120607, end: 20120607
  5. GEMCITABINE HYDROCHLORIDE [Concomitant]
     Dosage: 1000 MG/M2, UID/QD
     Route: 041
     Dates: start: 20120712, end: 20120712
  6. LIPITOR [Concomitant]
     Indication: PRODUCT USED FOR UNKNOWN INDICATION
     Dosage: 5 MG, UID/QD
     Route: 048
  7. NORVASC [Concomitant]
     Indication: PRODUCT USED FOR UNKNOWN INDICATION
     Dosage: 5 MG, UID/QD
     Route: 048
  8. GEMCITABINE HYDROCHLORIDE [Concomitant]
     Dosage: 1000 MG/M2, UID/QD
     Route: 041
     Dates: start: 20120719
  9. GEMCITABINE HYDROCHLORIDE [Concomitant]
     Dosage: 1000 MG/M2, UID/QD
     Route: 041
     Dates: start: 20120514, end: 20120514
  10. CANDESARTAN CILEXETIL [Concomitant]
     Indication: PRODUCT USED FOR UNKNOWN INDICATION
     Dosage: 12 MG, UID/QD
     Route: 048
  11. ZOLPIDEM [Concomitant]
     Indication: PRODUCT USED FOR UNKNOWN INDICATION
     Dosage: 5 MG, UID/QD
     Route: 048
     Dates: start: 20120510, end: 20120522
  12. ASPIRIN [Concomitant]
     Indication: PRODUCT USED FOR UNKNOWN INDICATION
     Dosage: 100 MG, UID/QD
     Route: 048
  13. ERLOTINIB HYDROCHLORIDE [Suspect]
     Indication: ADENOCARCINOMA PANCREAS
     Dosage: 100 MG, UID/QD
     Route: 048
     Dates: start: 20120508, end: 20120517
  14. MAGNESIUM OXIDE [Concomitant]
     Indication: PRODUCT USED FOR UNKNOWN INDICATION
     Dosage: 3 G, UID/QD
     Route: 048
  15. GEMCITABINE HYDROCHLORIDE [Concomitant]
     Dosage: 1000 MG/M2, UID/QD
     Route: 041
     Dates: start: 20120521, end: 20120521
  16. GEMCITABINE HYDROCHLORIDE [Concomitant]
     Dosage: 1000 MG/M2, UID/QD
     Route: 041
     Dates: start: 20120705, end: 20120705
  17. FAMOTIDINE [Concomitant]
     Indication: PRODUCT USED FOR UNKNOWN INDICATION
     Dosage: 20 MG, UID/QD
     Route: 048

REACTIONS (5)
  - RASH [None]
  - STOMATITIS [None]
  - HYPERKALAEMIA [None]
  - HYPERBILIRUBINAEMIA [None]
  - DECREASED APPETITE [None]
